FAERS Safety Report 8372010-3 (Version None)
Quarter: 2012Q2

REPORT INFORMATION
  Report Type: 
  Country: None (occurrence: None)
  Receive Date: 20120518
  Receipt Date: 20120504
  Transmission Date: 20120825
  Serious: Yes (Other)
  Sender: FDA-Public Use
  Company Number: CHPA2012US010400

PATIENT
  Age: 61 Year
  Sex: Female

DRUGS (1)
  1. BENEFIBER UNKNOWN [Suspect]
     Indication: CONSTIPATION
     Dosage: 30-60 CCS, QD
     Route: 048

REACTIONS (3)
  - OFF LABEL USE [None]
  - OVERDOSE [None]
  - DRUG DEPENDENCE [None]
